FAERS Safety Report 20020624 (Version 1)
Quarter: 2021Q4

REPORT INFORMATION
  Report Type: Spontaneous
  Country: CZ (occurrence: CZ)
  Receive Date: 20211101
  Receipt Date: 20211101
  Transmission Date: 20220303
  Serious: Yes (Hospitalization, Other)
  Sender: FDA-Public Use
  Company Number: None

PATIENT
  Age: 25 Year
  Sex: Female

DRUGS (2)
  1. COSENTYX [Suspect]
     Active Substance: SECUKINUMAB
     Indication: Ankylosing spondylitis
     Dosage: 184.5 MG (3 MG/KG, 184,5 MG FOR PATIENT?S WEIGHT, ONCE IN A MONTH, 9 INFUSIONS IN TOTAL, LAST ADMINI
     Route: 058
     Dates: end: 20210823
  2. MELOXICAM [Concomitant]
     Active Substance: MELOXICAM
     Indication: Pain
     Dosage: UNK (EXCEPTIONALLY FOR PAIN)
     Route: 065

REACTIONS (3)
  - Colitis [Unknown]
  - Diarrhoea haemorrhagic [Unknown]
  - Urinary tract infection bacterial [Unknown]

NARRATIVE: CASE EVENT DATE: 20210101
